FAERS Safety Report 13268297 (Version 2)
Quarter: 2017Q2

REPORT INFORMATION
  Report Type: Spontaneous
  Country: BR (occurrence: BR)
  Receive Date: 20170224
  Receipt Date: 20170502
  Transmission Date: 20170830
  Serious: Yes (Death, Hospitalization, Other)
  Sender: FDA-Public Use
  Company Number: BR-PFIZER INC-2017078219

PATIENT
  Age: 85 Year
  Sex: Female

DRUGS (4)
  1. RIVOTRIL [Concomitant]
     Active Substance: CLONAZEPAM
     Dosage: UNK
     Dates: start: 1987
  2. XALATAN [Suspect]
     Active Substance: LATANOPROST
     Indication: GLAUCOMA
     Dosage: 1 DROP IN EACH EYE AT NIGHT
     Route: 047
     Dates: start: 2010, end: 201701
  3. FORTEO [Concomitant]
     Active Substance: TERIPARATIDE
     Dosage: UNK
     Dates: start: 201408
  4. TRAMAL [Suspect]
     Active Substance: TRAMADOL
     Indication: PAIN
     Dosage: UNK
     Route: 042
     Dates: start: 20170120, end: 20170124

REACTIONS (16)
  - Pulmonary embolism [Fatal]
  - Acute respiratory failure [Fatal]
  - Cardiac arrest [Not Recovered/Not Resolved]
  - Femur fracture [Not Recovered/Not Resolved]
  - Conjunctivitis [Recovered/Resolved]
  - Dysphagia [Not Recovered/Not Resolved]
  - Spinal fracture [Not Recovered/Not Resolved]
  - Fall [Not Recovered/Not Resolved]
  - Parkinson^s disease [Not Recovered/Not Resolved]
  - Osteoporosis [Not Recovered/Not Resolved]
  - Underweight [Not Recovered/Not Resolved]
  - Eye discharge [Recovered/Resolved]
  - Spinal pain [Not Recovered/Not Resolved]
  - Confusional state [Not Recovered/Not Resolved]
  - Shock [Fatal]
  - Asthenia [Not Recovered/Not Resolved]

NARRATIVE: CASE EVENT DATE: 2011
